FAERS Safety Report 13930730 (Version 3)
Quarter: 2018Q1

REPORT INFORMATION
  Report Type: Report from Study
  Country: US (occurrence: US)
  Receive Date: 20170901
  Receipt Date: 20180319
  Transmission Date: 20180508
  Serious: Yes (Death, Hospitalization)
  Sender: FDA-Public Use
  Company Number: US-ACTELION-A-US2017-158729

PATIENT
  Age: 41 Year
  Sex: Female

DRUGS (1)
  1. TRACLEER [Suspect]
     Active Substance: BOSENTAN
     Indication: PULMONARY ARTERIAL HYPERTENSION
     Dosage: 125 MG, BID
     Route: 048
     Dates: start: 20021018

REACTIONS (6)
  - Squamous cell carcinoma [Not Recovered/Not Resolved]
  - Neoplasm malignant [Unknown]
  - Renal failure [Unknown]
  - Death [Fatal]
  - Seizure [Unknown]
  - Scleroderma [Unknown]

NARRATIVE: CASE EVENT DATE: 20180215
